FAERS Safety Report 8791417 (Version 1)
Quarter: 2012Q4

REPORT INFORMATION
  Report Type: Spontaneous
  Country: US (occurrence: None)
  Receive Date: 20120914
  Receipt Date: 20120914
  Transmission Date: 20130627
  Serious: Yes (Life-Threatening)
  Sender: FDA-Public Use
  Company Number: None

PATIENT
  Age: 30 Year
  Sex: Female
  Weight: 70 kg

DRUGS (2)
  1. NATALIZUMAB [Suspect]
     Indication: MULTIPLE SCLEROSIS
  2. OXYBUTYNIN [Concomitant]

REACTIONS (6)
  - Ataxia [None]
  - Escherichia urinary tract infection [None]
  - Cerebellar atrophy [None]
  - Visual impairment [None]
  - Dysarthria [None]
  - Progressive multifocal leukoencephalopathy [None]
